FAERS Safety Report 6790991-6 (Version None)
Quarter: 2010Q2

REPORT INFORMATION
  Report Type: 
  Country: None (occurrence: None)
  Receive Date: 20100624
  Receipt Date: 20100616
  Transmission Date: 20101027
  Serious: Yes (Hospitalization)
  Sender: FDA-Public Use
  Company Number: FR-AMGEN-QUU419633

PATIENT
  Sex: Female

DRUGS (2)
  1. ENBREL [Suspect]
     Indication: RHEUMATOID ARTHRITIS
     Route: 058
     Dates: start: 20100403, end: 20100410
  2. INSULIN [Concomitant]

REACTIONS (7)
  - ANAEMIA [None]
  - ASPIRATION [None]
  - CONVULSION [None]
  - ENCEPHALOPATHY [None]
  - HEMIPLEGIA [None]
  - HYPONATRAEMIA [None]
  - INFLAMMATION [None]
